FAERS Safety Report 8342520-3 (Version None)
Quarter: 2012Q2

REPORT INFORMATION
  Report Type: 
  Country: None (occurrence: None)
  Receive Date: 20120508
  Receipt Date: 20120427
  Transmission Date: 20120825
  Serious: No
  Sender: FDA-Public Use
  Company Number: US-BIOGENIDEC-2012BI015038

PATIENT
  Sex: Female

DRUGS (3)
  1. OSTEOPOROSIS MEDICINE (NOS) [Concomitant]
     Indication: OSTEOPOROSIS
  2. TYSABRI [Suspect]
     Indication: MULTIPLE SCLEROSIS
     Route: 042
     Dates: start: 20100226
  3. WATER PILL (NOS) [Concomitant]
     Indication: OEDEMA

REACTIONS (5)
  - HEADACHE [None]
  - MUSCULAR WEAKNESS [None]
  - OEDEMA [None]
  - FATIGUE [None]
  - PAIN IN EXTREMITY [None]
